FAERS Safety Report 6401829-0 (Version None)
Quarter: 2009Q4

REPORT INFORMATION
  Report Type: 
  Country: None (occurrence: None)
  Receive Date: 20091013
  Receipt Date: 20091013
  Transmission Date: 20100525
  Serious: No
  Sender: FDA-Public Use
  Company Number: None

PATIENT
  Age: 51 Year
  Sex: Male
  Weight: 68.9467 kg

DRUGS (1)
  1. CREST PRO HEALTH MOUTH RINSE [Suspect]
     Indication: DENTAL DISORDER PROPHYLAXIS
     Dosage: TWICE WEEKLY PO
     Route: 048
     Dates: start: 20090901, end: 20091010

REACTIONS (1)
  - TOOTH DISCOLOURATION [None]
